FAERS Safety Report 4776600-6 (Version None)
Quarter: 2005Q3

REPORT INFORMATION
  Report Type: 
  Country: None (occurrence: None)
  Receive Date: 20050915
  Receipt Date: 20050906
  Transmission Date: 20060218
  Serious: Yes (Hospitalization)
  Sender: FDA-Public Use
  Company Number: 2005113503

PATIENT
  Age: 40 Year
  Sex: Female

DRUGS (4)
  1. CLINDAMYCIN PHOSPHATE [Suspect]
     Indication: ILL-DEFINED DISORDER
     Dosage: INTRAVENOUS
     Route: 042
  2. VITAMINS [Suspect]
     Indication: ILL-DEFINED DISORDER
  3. ZOVIRAX [Concomitant]
  4. METHYLPREDNISOLONE [Concomitant]

REACTIONS (14)
  - DRUG ERUPTION [None]
  - DRUG INTOLERANCE [None]
  - DYSHIDROSIS [None]
  - ERYTHEMA MULTIFORME [None]
  - EXPOSURE TO CHEMICAL POLLUTION [None]
  - FUNGAL INFECTION [None]
  - HERPES SIMPLEX [None]
  - IMPETIGO [None]
  - MUSCULOSKELETAL STIFFNESS [None]
  - OEDEMA PERIPHERAL [None]
  - POST INFLAMMATORY PIGMENTATION CHANGE [None]
  - PYREXIA [None]
  - SKIN TEST POSITIVE [None]
  - VARICELLA [None]
